FAERS Safety Report 10038421 (Version 1)
Quarter: 2014Q1

REPORT INFORMATION
  Report Type: Spontaneous
  Country: US (occurrence: US)
  Receive Date: 20140326
  Receipt Date: 20140326
  Transmission Date: 20141002
  Serious: No
  Sender: FDA-Public Use
  Company Number: US-009507513-1403USA011745

PATIENT
  Age: 57 Year
  Sex: Male

DRUGS (3)
  1. PEGINTRON [Suspect]
     Indication: HEPATITIS C
     Dosage: STRENGTH: 120 MG/.5 CC, DOSE 0.4 CC, ONCE A WEEK
     Route: 058
     Dates: start: 20140314
  2. REBETOL [Suspect]
     Indication: HEPATITIS C
     Dosage: 1AM AND PM, TWICE A DAY
     Route: 048
     Dates: start: 20140314
  3. SOVALDI [Concomitant]
     Dosage: 400 MG, QD
     Route: 048

REACTIONS (2)
  - Back pain [Unknown]
  - Injection site erythema [Unknown]
